FAERS Safety Report 4883009-3 (Version None)
Quarter: 2006Q1

REPORT INFORMATION
  Report Type: 
  Country: None (occurrence: None)
  Receive Date: 20060113
  Receipt Date: 20051228
  Transmission Date: 20060701
  Serious: Yes (Hospitalization)
  Sender: FDA-Public Use
  Company Number: DK200512004191

PATIENT
  Age: 83 Year
  Sex: Female
  Weight: 49 kg

DRUGS (5)
  1. FORTEO [Suspect]
     Indication: OSTEOPOROSIS
     Dosage: 20 UG/DAY, DAILY (1/D), SUBCUTANEOUS
     Route: 058
     Dates: start: 20041208
  2. ATACAND [Concomitant]
  3. WARFARIN SODIUM [Concomitant]
  4. MAGNYL (ACETYLSALICYLIC ACID, MAGNESIUM OXIDE) [Concomitant]
  5. FORTEO [Concomitant]

REACTIONS (1)
  - CEREBROVASCULAR ACCIDENT [None]
